FAERS Safety Report 20011129 (Version 1)
Quarter: 2021Q4

REPORT INFORMATION
  Report Type: Spontaneous
  Country: US (occurrence: US)
  Receive Date: 20211029
  Receipt Date: 20211029
  Transmission Date: 20220304
  Serious: No
  Sender: FDA-Public Use
  Company Number: US-BOEHRINGERINGELHEIM-2021-BI-135323

PATIENT
  Age: 44 Year
  Sex: Male

DRUGS (1)
  1. JARDIANCE [Suspect]
     Active Substance: EMPAGLIFLOZIN
     Indication: Diabetes mellitus
     Dates: start: 202103, end: 202110

REACTIONS (2)
  - Abdominal pain upper [Unknown]
  - Pollakiuria [Unknown]
